FAERS Safety Report 7575013-1 (Version None)
Quarter: 2011Q2

REPORT INFORMATION
  Report Type: 
  Country: None (occurrence: None)
  Receive Date: 20110627
  Receipt Date: 20110131
  Transmission Date: 20111010
  Serious: Yes (Other)
  Sender: FDA-Public Use
  Company Number: US-BAYER-201035827NA

PATIENT
  Age: 32 Year
  Sex: Female
  Weight: 65.76 kg

DRUGS (2)
  1. YASMIN [Suspect]
     Dates: start: 20010701, end: 20040101
  2. UNKNOWN [Concomitant]
     Indication: PITUITARY TUMOUR
     Dosage: UNK
     Dates: start: 20050101

REACTIONS (6)
  - CHOLECYSTECTOMY [None]
  - CHOLELITHIASIS [None]
  - CHOLECYSTITIS CHRONIC [None]
  - AMENORRHOEA [None]
  - ABDOMINAL PAIN [None]
  - PITUITARY TUMOUR [None]
